FAERS Safety Report 4917644-0 (Version None)
Quarter: 2006Q1

REPORT INFORMATION
  Report Type: 
  Country: None (occurrence: None)
  Receive Date: 20060221
  Receipt Date: 20060206
  Transmission Date: 20060701
  Serious: Yes (Other)
  Sender: FDA-Public Use
  Company Number: GB-JNJFOC-20060204305

PATIENT
  Age: 73 Year
  Sex: Male
  Weight: 75 kg

DRUGS (7)
  1. TRAMADOL HCL [Suspect]
     Indication: PROCEDURAL PAIN
     Dosage: DURATION: ONCE
     Route: 048
  2. CO-CODAMOL [Concomitant]
     Route: 048
  3. CO-CODAMOL [Concomitant]
     Route: 048
  4. LISINOPRIL [Concomitant]
     Route: 048
  5. DIGOXIN [Concomitant]
     Indication: ATRIAL FIBRILLATION
     Route: 048
  6. ENOXAPARIN SODIUM [Concomitant]
     Indication: POSTOPERATIVE ANALGESIA
     Route: 048
  7. BECLOMETHASONE DIPROPIONATE [Concomitant]
     Route: 055

REACTIONS (1)
  - ATRIAL FIBRILLATION [None]
